FAERS Safety Report 5815350-1 (Version None)
Quarter: 2008Q3

REPORT INFORMATION
  Report Type: 
  Country: None (occurrence: None)
  Receive Date: 20080718
  Receipt Date: 20080707
  Transmission Date: 20090109
  Serious: Yes (Hospitalization, Other)
  Sender: FDA-Public Use
  Company Number: JP-PFIZER INC-2008038187

PATIENT
  Sex: Female
  Weight: 2.59 kg

DRUGS (8)
  1. SOLANAX [Suspect]
     Indication: BORDERLINE PERSONALITY DISORDER
  2. HALCION [Suspect]
  3. DIAZEPAM [Suspect]
  4. ROHYPNOL [Suspect]
  5. NITRAZEPAM [Suspect]
  6. TRIAZOLAM [Suspect]
  7. WYPAX [Suspect]
  8. DEPAS [Suspect]

REACTIONS (3)
  - DRUG EXPOSURE DURING PREGNANCY [None]
  - MELAENA NEONATAL [None]
  - WEIGHT GAIN POOR [None]
